FAERS Safety Report 5748501-8 (Version None)
Quarter: 2008Q2

REPORT INFORMATION
  Report Type: 
  Country: None (occurrence: None)
  Receive Date: 20080523
  Receipt Date: 20080514
  Transmission Date: 20081010
  Serious: Yes (Hospitalization)
  Sender: FDA-Public Use
  Company Number: FR-PFIZER INC-2008041721

PATIENT
  Sex: Male

DRUGS (10)
  1. ALDACTONE [Suspect]
     Indication: CARDIAC FAILURE
     Route: 048
  2. PANTOPRAZOLE SODIUM [Suspect]
     Indication: ABDOMINAL PAIN UPPER
     Route: 048
  3. BISOPROLOL FUMARATE [Suspect]
     Indication: CARDIAC FAILURE
     Route: 048
  4. ASPIRIN [Suspect]
     Indication: THROMBOSIS PROPHYLAXIS
     Route: 048
  5. RAMIPRIL [Suspect]
     Indication: CARDIAC FAILURE
     Dosage: DAILY DOSE:2.5MG-FREQ:QD
     Route: 048
  6. SIMVASTATIN [Suspect]
     Indication: HYPERCHOLESTEROLAEMIA
     Route: 048
  7. GLIMEPIRIDE [Suspect]
     Indication: DIABETES MELLITUS
     Route: 048
  8. BUMETANIDE [Suspect]
     Indication: CARDIAC FAILURE
     Route: 048
  9. BUMETANIDE [Suspect]
     Route: 048
     Dates: start: 20071109, end: 20071113
  10. BUMETANIDE [Suspect]
     Dosage: FREQ:UNKNOWN
     Route: 048

REACTIONS (2)
  - PURPURA [None]
  - RASH [None]
